FAERS Safety Report 7879344-7 (Version None)
Quarter: 2011Q4

REPORT INFORMATION
  Report Type: 
  Country: None (occurrence: None)
  Receive Date: 20111101
  Receipt Date: 20111020
  Transmission Date: 20120403
  Serious: Yes (Other)
  Sender: FDA-Public Use
  Company Number: DE-ELI_LILLY_AND_COMPANY-DE201110005204

PATIENT
  Sex: Female
  Weight: 40 kg

DRUGS (3)
  1. METAMIZOL                          /06276702/ [Concomitant]
     Dosage: UNK, PRN
  2. FORTEO [Suspect]
     Indication: OSTEOPOROSIS
     Dosage: UNK, QD
     Route: 058
     Dates: start: 20110201
  3. CALCIMAGON                         /00751501/ [Concomitant]
     Dosage: UNK, BID

REACTIONS (2)
  - ANAEMIA [None]
  - WEIGHT DECREASED [None]
